FAERS Safety Report 25242950 (Version 1)
Quarter: 2025Q2

REPORT INFORMATION
  Report Type: Report from Study
  Country: US (occurrence: US)
  Receive Date: 20250428
  Receipt Date: 20250428
  Transmission Date: 20250717
  Serious: Yes (Hospitalization, Other)
  Sender: ABBVIE
  Company Number: US-ABBVIE-6250127

PATIENT
  Sex: Female

DRUGS (2)
  1. QULIPTA [Suspect]
     Active Substance: ATOGEPANT
     Indication: Migraine
     Route: 048
  2. UBRELVY [Suspect]
     Active Substance: UBROGEPANT
     Indication: Migraine
     Route: 048

REACTIONS (6)
  - Cardiac disorder [Recovering/Resolving]
  - Thrombosis [Recovering/Resolving]
  - Movement disorder [Recovering/Resolving]
  - Cerebral artery embolism [Recovering/Resolving]
  - Cerebrovascular accident [Recovering/Resolving]
  - Aphasia [Recovering/Resolving]
